FAERS Safety Report 17691833 (Version 11)
Quarter: 2022Q2

REPORT INFORMATION
  Report Type: Report from Study
  Country: US (occurrence: US)
  Receive Date: 20200422
  Receipt Date: 20220412
  Transmission Date: 20220720
  Serious: Yes (Death, Hospitalization, Other)
  Sender: FDA-Public Use
  Company Number: US-SHIRE-US202014084

PATIENT
  Age: 78 Year
  Sex: Female
  Weight: 45 kg

DRUGS (18)
  1. HUMAN IMMUNOGLOBULIN G [Suspect]
     Active Substance: HUMAN IMMUNOGLOBULIN G
     Indication: Immunodeficiency common variable
     Dosage: 14 GRAM, 1/WEEK
     Route: 058
     Dates: start: 20200206
  2. HUMAN IMMUNOGLOBULIN G [Suspect]
     Active Substance: HUMAN IMMUNOGLOBULIN G
     Dosage: 14 GRAM, 1/WEEK
     Route: 058
     Dates: start: 20200211
  3. HUMAN IMMUNOGLOBULIN G [Suspect]
     Active Substance: HUMAN IMMUNOGLOBULIN G
     Dosage: 14 GRAM, 1/WEEK
     Route: 058
     Dates: start: 20220113
  4. ACETAMINOPHEN [Concomitant]
     Active Substance: ACETAMINOPHEN
     Route: 065
  5. DIPHENHYDRAMINE [Concomitant]
     Active Substance: DIPHENHYDRAMINE
     Route: 065
  6. EPINEPHRINE [Concomitant]
     Active Substance: EPINEPHRINE
     Route: 065
  7. LIDOCAINE [Concomitant]
     Active Substance: LIDOCAINE
     Route: 065
  8. DYMISTA [Concomitant]
     Active Substance: AZELASTINE HYDROCHLORIDE\FLUTICASONE PROPIONATE
     Route: 065
  9. PROVENTIL [Concomitant]
     Active Substance: ALBUTEROL
     Route: 065
  10. CLARINEX [Concomitant]
     Active Substance: DESLORATADINE
     Route: 065
  11. MONTELUKAST [Concomitant]
     Active Substance: MONTELUKAST SODIUM
     Route: 065
  12. ADVAIR HFA [Concomitant]
     Active Substance: FLUTICASONE PROPIONATE\SALMETEROL XINAFOATE
     Route: 065
  13. DISKUS [Concomitant]
     Route: 065
  14. VITAMINS [Concomitant]
     Active Substance: VITAMINS
     Route: 065
  15. CALCIUM [Concomitant]
     Active Substance: CALCIUM
     Route: 065
  16. EPIPEN [Concomitant]
     Active Substance: EPINEPHRINE
     Route: 065
  17. MONTELUKAST SODIUM [Concomitant]
     Active Substance: MONTELUKAST SODIUM
     Route: 065
  18. PROVENTIL HFA [Concomitant]
     Active Substance: ALBUTEROL SULFATE
     Route: 065

REACTIONS (6)
  - Death [Fatal]
  - Pneumonia [Unknown]
  - Aspergillus infection [Unknown]
  - Pseudomonas infection [Unknown]
  - Haemoptysis [Recovered/Resolved]
  - Infection [Unknown]

NARRATIVE: CASE EVENT DATE: 20210605
